FAERS Safety Report 5498561-7 (Version None)
Quarter: 2007Q4

REPORT INFORMATION
  Report Type: 
  Country: None (occurrence: None)
  Receive Date: 20071024
  Receipt Date: 20071024
  Transmission Date: 20080405
  Serious: Yes (Death)
  Sender: FDA-Public Use
  Company Number: None

PATIENT
  Sex: Female
  Weight: 50 kg

DRUGS (3)
  1. FLUDARABINE PHOSPHATE [Suspect]
     Indication: HODGKIN'S DISEASE
     Dosage: 39 DAILY IV
     Route: 042
     Dates: start: 20070917, end: 20070921
  2. MELPHALAN [Suspect]
     Dosage: 91 TIMES ONE IV
     Route: 042
     Dates: start: 20070921, end: 20070921
  3. ANTI THYMOCYTE GLOBULIN [Concomitant]

REACTIONS (6)
  - BRADYCARDIA [None]
  - CARDIO-RESPIRATORY ARREST [None]
  - EJECTION FRACTION DECREASED [None]
  - GASTROINTESTINAL HAEMORRHAGE [None]
  - PLEURAL EFFUSION [None]
  - RESPIRATORY FAILURE [None]
